FAERS Safety Report 20667449 (Version 2)
Quarter: 2022Q2

REPORT INFORMATION
  Report Type: Spontaneous
  Country: US (occurrence: None)
  Receive Date: 20220404
  Receipt Date: 20220422
  Transmission Date: 20220721
  Serious: Yes (Other)
  Sender: FDA-Public Use
  Company Number: US-ROCHE-3056967

PATIENT
  Sex: Male

DRUGS (1)
  1. OCREVUS [Suspect]
     Active Substance: OCRELIZUMAB
     Indication: Multiple sclerosis
     Dosage: EVERY 6 MONTHS
     Route: 042
     Dates: start: 20200612

REACTIONS (6)
  - Multiple sclerosis relapse [Unknown]
  - Sciatica [Unknown]
  - Burning sensation [Unknown]
  - Multiple sclerosis [Unknown]
  - Temperature intolerance [Unknown]
  - Tinnitus [Unknown]
